FAERS Safety Report 15135988 (Version 1)
Quarter: 2018Q3

REPORT INFORMATION
  Report Type: Report from Study
  Country: BG (occurrence: BG)
  Receive Date: 20180712
  Receipt Date: 20180712
  Transmission Date: 20181010
  Serious: Yes (Hospitalization, Other)
  Sender: FDA-Public Use
  Company Number: BG-BAYER-2017-080694

PATIENT
  Age: 35 Year
  Sex: Female

DRUGS (4)
  1. BETAFERON [Suspect]
     Active Substance: INTERFERON BETA-1B
     Indication: MULTIPLE SCLEROSIS
     Dosage: 1 ML, QOD
     Route: 058
     Dates: start: 201605
  2. ASPIRIN PROTECT 100 MG [Suspect]
     Active Substance: ASPIRIN
     Indication: ABORTION SPONTANEOUS
     Dosage: UNK
  3. BETAFERON [Suspect]
     Active Substance: INTERFERON BETA-1B
     Indication: MULTIPLE SCLEROSIS
     Dosage: 8 IU, QOD
     Route: 058
     Dates: start: 200701, end: 201110
  4. BETAFERON [Suspect]
     Active Substance: INTERFERON BETA-1B
     Indication: MULTIPLE SCLEROSIS
     Dosage: 1 ML, QOD
     Route: 058
     Dates: start: 201305

REACTIONS (15)
  - Staring [Recovered/Resolved]
  - Gait disturbance [Recovered/Resolved]
  - Limb discomfort [Recovered/Resolved]
  - Dizziness [Recovered/Resolved]
  - Maternal exposure during pregnancy [None]
  - Menorrhagia [None]
  - Multiple sclerosis relapse [Recovered/Resolved]
  - Malnutrition [None]
  - Nystagmus [Recovered/Resolved]
  - Paraesthesia [Recovered/Resolved]
  - Medication monitoring error [None]
  - Formication [Recovered/Resolved]
  - Haemoglobin decreased [Recovering/Resolving]
  - Haematocrit decreased [Recovering/Resolving]
  - Iron deficiency anaemia [None]

NARRATIVE: CASE EVENT DATE: 2011
